FAERS Safety Report 6101972-X (Version None)
Quarter: 2009Q1

REPORT INFORMATION
  Report Type: 
  Country: None (occurrence: None)
  Receive Date: 20090304
  Receipt Date: 20090220
  Transmission Date: 20090719
  Serious: Yes (Other)
  Sender: FDA-Public Use
  Company Number: FR-PFIZER INC-2009174679

PATIENT

DRUGS (7)
  1. ZITHROMAX [Suspect]
     Indication: LUNG DISORDER
     Dosage: 250 MG, 1X/DAY
     Route: 048
     Dates: start: 20090101, end: 20090105
  2. CEFTRIAXONE SODIUM [Suspect]
     Indication: LUNG DISORDER
     Dosage: 2 G, 1X/DAY
     Route: 042
     Dates: start: 20090101, end: 20090105
  3. SYMBICORT [Concomitant]
     Dosage: UNK
  4. ALDACTONE [Concomitant]
     Dosage: UNK
  5. NEXIUM [Concomitant]
     Dosage: UNK
  6. VERAPAMIL [Concomitant]
     Dosage: UNK
  7. TRINITRINE [Concomitant]
     Dosage: UNK

REACTIONS (2)
  - PETECHIAE [None]
  - PURPURA NON-THROMBOCYTOPENIC [None]
